FAERS Safety Report 15327151 (Version 1)
Quarter: 2018Q3

REPORT INFORMATION
  Report Type: Spontaneous
  Country: US (occurrence: US)
  Receive Date: 20180823
  Receipt Date: 20180823
  Transmission Date: 20181010
  Serious: Yes (Other)
  Sender: FDA-Public Use
  Company Number: None

PATIENT
  Age: 71 Year
  Sex: Male
  Weight: 70.02 kg

DRUGS (9)
  1. CHOLECALCIFEROL (VIT D3) 1,000UNIT TAB [Concomitant]
  2. LISINOPRIL 10MG [Concomitant]
     Active Substance: LISINOPRIL
  3. PRAVASTATIN NA 80MG TAB [Concomitant]
  4. TAMSULOSIN HCL 0.4MG CAP [Concomitant]
  5. RILPIVIRINE 25MG [Concomitant]
  6. FINASTERIDE 5MG TAB [Concomitant]
  7. ZEPATIER [Suspect]
     Active Substance: ELBASVIR\GRAZOPREVIR
  8. AMLODIPINE BESYLATE 10MG TAB [Concomitant]
  9. DOLUTEGRAVIR 50MG TAB [Concomitant]

REACTIONS (1)
  - Renal injury [None]
